FAERS Safety Report 17083681 (Version 2)
Quarter: 2019Q4

REPORT INFORMATION
  Report Type: Spontaneous
  Country: JP (occurrence: JP)
  Receive Date: 20191127
  Receipt Date: 20191226
  Transmission Date: 20200122
  Serious: Yes (Death, Other)
  Sender: FDA-Public Use
  Company Number: JP-SHIRE-JP201940111

PATIENT
  Age: 72 Year
  Sex: Female

DRUGS (1)
  1. FEIBA NF [Suspect]
     Active Substance: ANTI-INHIBITOR COAGULANT COMPLEX
     Indication: FACTOR X DEFICIENCY
     Dosage: 1000 INTERNATIONAL UNIT
     Route: 065
     Dates: start: 201803, end: 201803

REACTIONS (8)
  - Therapeutic response unexpected [Unknown]
  - Intentional product use issue [Unknown]
  - Pulmonary oedema [Not Recovered/Not Resolved]
  - Hepatic failure [Not Recovered/Not Resolved]
  - Atelectasis [Not Recovered/Not Resolved]
  - Hepatic amyloidosis [Not Recovered/Not Resolved]
  - General physical health deterioration [Not Recovered/Not Resolved]
  - Dyspnoea [Not Recovered/Not Resolved]
